FAERS Safety Report 6861323-X (Version None)
Quarter: 2010Q3

REPORT INFORMATION
  Report Type: 
  Country: None (occurrence: None)
  Receive Date: 20100715
  Receipt Date: 20100630
  Transmission Date: 20110219
  Serious: Yes (Other)
  Sender: FDA-Public Use
  Company Number: CA-1182517

PATIENT
  Age: 70 Year
  Sex: Male

DRUGS (1)
  1. FLUORESCITE [Suspect]
     Dosage: INTRAVENOUS BOLUS
     Route: 040
     Dates: start: 20100527, end: 20100527

REACTIONS (3)
  - ABDOMINAL PAIN UPPER [None]
  - PARAESTHESIA [None]
  - PRURITUS [None]
